FAERS Safety Report 10541520 (Version 2)
Quarter: 2014Q4

REPORT INFORMATION
  Report Type: Report from Study
  Country: BR (occurrence: BR)
  Receive Date: 20141024
  Receipt Date: 20141104
  Transmission Date: 20150529
  Serious: Yes (Other)
  Sender: FDA-Public Use
  Company Number: PHHY2014BR137819

PATIENT
  Sex: Male
  Weight: 50 kg

DRUGS (1)
  1. TRILEPTAL [Suspect]
     Active Substance: OXCARBAZEPINE
     Indication: PETIT MAL EPILEPSY
     Dosage: UNK UKN, UNK (THREE BOTTLES A MONTH)
     Route: 048
     Dates: end: 2011

REACTIONS (2)
  - Seizure [Recovered/Resolved]
  - Petit mal epilepsy [Recovered/Resolved]
